FAERS Safety Report 9118632 (Version 1)
Quarter: 2013Q1

REPORT INFORMATION
  Report Type: Report from Study
  Country: IT (occurrence: IT)
  Receive Date: 20130226
  Receipt Date: 20130226
  Transmission Date: 20140127
  Serious: Yes (Other)
  Sender: FDA-Public Use
  Company Number: IT-AMGEN-USACT2013013101

PATIENT
  Age: 74 Year
  Sex: 0

DRUGS (1)
  1. DENOSUMAB [Suspect]
     Indication: PRODUCT USED FOR UNKNOWN INDICATION
     Dosage: UNK
     Dates: start: 20121220, end: 20130215

REACTIONS (2)
  - Disease progression [Unknown]
  - General physical health deterioration [Unknown]
